FAERS Safety Report 19411932 (Version 2)
Quarter: 2022Q1

REPORT INFORMATION
  Report Type: Report from Study
  Country: AU (occurrence: AU)
  Receive Date: 20210614
  Receipt Date: 20220207
  Transmission Date: 20220423
  Serious: Yes (Other)
  Sender: FDA-Public Use
  Company Number: AU-NOVARTISPH-NVSC2020AU294360

PATIENT
  Age: 63 Year
  Sex: Female

DRUGS (2)
  1. MAYZENT [Suspect]
     Active Substance: SIPONIMOD
     Indication: Secondary progressive multiple sclerosis
     Dosage: 0.5 MG, QD
     Route: 048
     Dates: start: 20201029
  2. MAYZENT [Suspect]
     Active Substance: SIPONIMOD
     Dosage: 2 MG, QD
     Route: 048
     Dates: start: 20201029

REACTIONS (17)
  - Cardiac flutter [Unknown]
  - Multiple sclerosis relapse [Unknown]
  - Depression [Recovered/Resolved]
  - Tearfulness [Recovered/Resolved]
  - Limb discomfort [Unknown]
  - Muscle tightness [Unknown]
  - Somnolence [Unknown]
  - Cognitive disorder [Unknown]
  - Memory impairment [Not Recovered/Not Resolved]
  - Nausea [Recovered/Resolved]
  - Pain in extremity [Unknown]
  - Fatigue [Unknown]
  - Electric shock [Unknown]
  - Dysphonia [Unknown]
  - Tremor [Unknown]
  - Product storage error [Unknown]
  - Product dose omission issue [Unknown]

NARRATIVE: CASE EVENT DATE: 20201029
